FAERS Safety Report 6595074-6 (Version None)
Quarter: 2010Q1

REPORT INFORMATION
  Report Type: 
  Country: None (occurrence: None)
  Receive Date: 20100212
  Receipt Date: 20100208
  Transmission Date: 20100710
  Serious: Yes (Death, Hospitalization)
  Sender: FDA-Public Use
  Company Number: 2010SP007540

PATIENT
  Age: 66 Year
  Sex: Female

DRUGS (6)
  1. TEMODAL [Suspect]
     Indication: GLIOBLASTOMA
     Dosage: 100 MG; PO
     Route: 048
     Dates: start: 20091201, end: 20100105
  2. KEPPRA [Suspect]
     Indication: DRUG USE FOR UNKNOWN INDICATION
     Dosage: 500 MG; PO
     Route: 048
     Dates: start: 20091201, end: 20100105
  3. BACTRIM [Suspect]
     Indication: DRUG USE FOR UNKNOWN INDICATION
     Dosage: PO
     Route: 048
     Dates: start: 20091201, end: 20100105
  4. HUMULIN (CON.) [Concomitant]
  5. NAPRILENE (CON.) [Concomitant]
  6. MEPRAL (CON.) [Concomitant]

REACTIONS (4)
  - EPISTAXIS [None]
  - HAEMATOMA [None]
  - PANCYTOPENIA [None]
  - PETECHIAE [None]
